FAERS Safety Report 22045235 (Version 1)
Quarter: 2023Q1

REPORT INFORMATION
  Report Type: Spontaneous
  Country: US (occurrence: None)
  Receive Date: 20230227
  Receipt Date: 20230227
  Transmission Date: 20230418
  Serious: Yes (Life-Threatening, Other)
  Sender: FDA-Public Use
  Company Number: None

PATIENT
  Age: 32 Year
  Sex: Male
  Weight: 86.4 kg

DRUGS (3)
  1. MONTELUKAST [Suspect]
     Active Substance: MONTELUKAST SODIUM
     Dates: start: 20230202, end: 20230225
  2. METFORMIN [Concomitant]
     Active Substance: METFORMIN HYDROCHLORIDE
  3. Bipap machine Modafinil [Concomitant]

REACTIONS (8)
  - Anxiety [None]
  - Paranoia [None]
  - Suicidal ideation [None]
  - Memory impairment [None]
  - Partner stress [None]
  - Abnormal behaviour [None]
  - Personality change [None]
  - Hallucination, auditory [None]

NARRATIVE: CASE EVENT DATE: 20230224
